FAERS Safety Report 8614245-8 (Version None)
Quarter: 2012Q3

REPORT INFORMATION
  Report Type: 
  Country: None (occurrence: None)
  Receive Date: 20120813
  Receipt Date: 20120813
  Transmission Date: 20120928
  Serious: Yes (Life-Threatening, Hospitalization)
  Sender: FDA-Public Use
  Company Number: None

PATIENT
  Age: 57 Year
  Sex: Male
  Weight: 93 kg

DRUGS (2)
  1. SIMVASTATIN [Suspect]
     Indication: HYPERLIPIDAEMIA
     Dosage: 20 MG HS
     Dates: start: 20061016
  2. PAROXETINE [Suspect]
     Indication: DEPRESSION
     Dosage: 60 MG HS PO
     Route: 048
     Dates: start: 20061016, end: 20120720

REACTIONS (12)
  - TREMOR [None]
  - MUSCLE SPASMS [None]
  - BLOOD UREA INCREASED [None]
  - SEROTONIN SYNDROME [None]
  - CHILLS [None]
  - LEUKOCYTOSIS [None]
  - DECREASED APPETITE [None]
  - CLONUS [None]
  - BLOOD CREATINE PHOSPHOKINASE INCREASED [None]
  - BLOOD CREATININE INCREASED [None]
  - PYREXIA [None]
  - HYPERHIDROSIS [None]
